FAERS Safety Report 24351171 (Version 1)
Quarter: 2024Q3

REPORT INFORMATION
  Report Type: Report from Study
  Country: AT (occurrence: AT)
  Receive Date: 20240923
  Receipt Date: 20240923
  Transmission Date: 20241016
  Serious: No
  Sender: ROCHE
  Company Number: AT-ROCHE-2565692

PATIENT
  Age: 62 Year
  Sex: Female
  Weight: 80.4 kg

DRUGS (85)
  1. HERCEPTIN [Suspect]
     Active Substance: TRASTUZUMAB
     Indication: Breast cancer metastatic
     Dosage: ON 10/AUG/2017, MOST RECENT DOSE OF TRASTUZUMAB
     Route: 041
     Dates: start: 20170224, end: 20170224
  2. HERCEPTIN [Suspect]
     Active Substance: TRASTUZUMAB
     Dosage: ON 10/AUG/2017, MOST RECENT DOSE OF TRASTUZUMAB
     Route: 042
     Dates: start: 20170317, end: 20170317
  3. HERCEPTIN [Suspect]
     Active Substance: TRASTUZUMAB
     Dosage: ON 10/AUG/2017, MOST RECENT DOSE OF TRASTUZUMAB
     Route: 042
     Dates: start: 20170410, end: 20170427
  4. HERCEPTIN [Suspect]
     Active Substance: TRASTUZUMAB
     Dosage: ON 10/AUG/2017, MOST RECENT DOSE OF TRASTUZUMAB
     Route: 042
     Dates: start: 20170519, end: 20170519
  5. HERCEPTIN [Suspect]
     Active Substance: TRASTUZUMAB
     Dosage: ON 10/AUG/2017, MOST RECENT DOSE OF TRASTUZUMAB
     Route: 042
     Dates: start: 20170609, end: 20170630
  6. HERCEPTIN [Suspect]
     Active Substance: TRASTUZUMAB
     Dosage: ON 10/AUG/2017, MOST RECENT DOSE OF TRASTUZUMAB
     Route: 042
     Dates: start: 20170720, end: 20170720
  7. HERCEPTIN [Suspect]
     Active Substance: TRASTUZUMAB
     Dosage: ON 10/AUG/2017, MOST RECENT DOSE OF TRASTUZUMAB
     Route: 042
     Dates: start: 20170810, end: 20190213
  8. HERCEPTIN [Suspect]
     Active Substance: TRASTUZUMAB
     Route: 042
     Dates: start: 20200422, end: 20200624
  9. KADCYLA [Suspect]
     Active Substance: ADO-TRASTUZUMAB EMTANSINE
     Indication: Breast cancer metastatic
     Dosage: ON 09/SEP/2019, MOST RECENT DOSE OF TRASTUZUMAB EMTANSINE
     Route: 042
     Dates: start: 20190306
  10. PERJETA [Suspect]
     Active Substance: PERTUZUMAB
     Indication: Breast cancer metastatic
     Dosage: ON 24/FEB/2017, MOST RECENT DOSE OF PERTUZUMAB PRIOR TO EVENT ONSET
     Route: 042
     Dates: start: 20170224
  11. PERJETA [Suspect]
     Active Substance: PERTUZUMAB
     Dosage: ON 24/FEB/2017, MOST RECENT DOSE OF PERTUZUMAB PRIOR TO EVENT ONSET
     Route: 042
     Dates: start: 20170317, end: 20190213
  12. PERJETA [Suspect]
     Active Substance: PERTUZUMAB
     Route: 042
     Dates: start: 20200422, end: 20200625
  13. XELODA [Suspect]
     Active Substance: CAPECITABINE
     Indication: Breast cancer metastatic
     Dosage: 07/01/2020, MOST RECENT DOSE OF CAPACITABINE
     Route: 048
     Dates: start: 20191002, end: 20200107
  14. XELODA [Suspect]
     Active Substance: CAPECITABINE
     Route: 048
     Dates: start: 20200108, end: 20200421
  15. TAXOTERE [Suspect]
     Active Substance: DOCETAXEL
     Indication: Breast cancer metastatic
     Dosage: ON 09/JUN/2017, MOST RECENT DOSE OF DOCETAXEL PRIOR TO THE EVENT
     Route: 042
     Dates: start: 20170224, end: 20170317
  16. TAXOTERE [Suspect]
     Active Substance: DOCETAXEL
     Dosage: ON 09/JUN/2017, MOST RECENT DOSE OF DOCETAXEL PRIOR TO THE EVENT
     Route: 042
     Dates: start: 20170410, end: 20170427
  17. TAXOTERE [Suspect]
     Active Substance: DOCETAXEL
     Dosage: ON 09/JUN/2017, MOST RECENT DOSE OF DOCETAXEL PRIOR TO THE EVENT
     Route: 042
     Dates: start: 20170519, end: 20170519
  18. TAXOTERE [Suspect]
     Active Substance: DOCETAXEL
     Dosage: ON 09/JUN/2017, MOST RECENT DOSE OF DOCETAXEL PRIOR TO THE EVENT
     Route: 042
     Dates: start: 20170609, end: 20170609
  19. FASLODEX [Suspect]
     Active Substance: FULVESTRANT
     Indication: Breast cancer metastatic
     Dosage: ON 16/NOV/2017, MOST RECENT DOSE OF FULVESTRANT PRIOR TO THE EVENT
     Route: 058
     Dates: start: 20171002, end: 20171115
  20. FASLODEX [Suspect]
     Active Substance: FULVESTRANT
     Dosage: ON 16/NOV/2017, MOST RECENT DOSE OF FULVESTRANT PRIOR TO THE EVENT
     Route: 058
     Dates: start: 20171116, end: 20191001
  21. TYKERB [Suspect]
     Active Substance: LAPATINIB DITOSYLATE
     Indication: Breast cancer metastatic
     Dosage: 07/JAN/2020, MOST RECENT DOSE OF LAPATINIB
     Route: 048
     Dates: start: 20191002, end: 20200107
  22. TYKERB [Suspect]
     Active Substance: LAPATINIB DITOSYLATE
     Route: 048
     Dates: start: 20200108, end: 20200421
  23. XGEVA [Concomitant]
     Active Substance: DENOSUMAB
     Route: 058
     Dates: start: 20170202, end: 20210521
  24. CALCIUM\VITAMINS [Concomitant]
     Active Substance: CALCIUM\VITAMINS
     Dates: start: 20170203, end: 20210612
  25. OLIVE OIL [Concomitant]
     Active Substance: OLIVE OIL
     Indication: Paronychia
     Dates: start: 20191002, end: 20200512
  26. DIPRODERM (AUSTRIA) [Concomitant]
     Indication: Eczema
     Dosage: ONE APPLICATION
     Route: 061
     Dates: start: 20191122, end: 20191215
  27. PREGABALIN [Concomitant]
     Active Substance: PREGABALIN
     Dates: start: 20190821, end: 20210616
  28. PREGABALIN [Concomitant]
     Active Substance: PREGABALIN
     Route: 048
     Dates: start: 20170428, end: 20180123
  29. EDOXABAN TOSYLATE [Concomitant]
     Active Substance: EDOXABAN TOSYLATE
     Dosage: ONGOING = NOT CHECKED
     Dates: start: 20191120, end: 20200608
  30. FUROSEMIDE [Concomitant]
     Active Substance: FUROSEMIDE
     Route: 048
     Dates: start: 20170713, end: 20170809
  31. FUROSEMIDE [Concomitant]
     Active Substance: FUROSEMIDE
     Route: 048
     Dates: start: 20170810, end: 20190212
  32. FUROSEMIDE [Concomitant]
     Active Substance: FUROSEMIDE
     Route: 048
     Dates: start: 20170810, end: 20171213
  33. PANTOPRAZOLE SODIUM [Concomitant]
     Active Substance: PANTOPRAZOLE SODIUM
     Route: 048
     Dates: start: 20170722, end: 20180327
  34. PANTOPRAZOLE SODIUM [Concomitant]
     Active Substance: PANTOPRAZOLE SODIUM
     Route: 048
     Dates: end: 20170721
  35. POLYETHYLENE GLYCOL 3350\POTASSIUM CHLORIDE\SODIUM BICARBONATE\SODIUM [Concomitant]
     Active Substance: POLYETHYLENE GLYCOL 3350\POTASSIUM CHLORIDE\SODIUM BICARBONATE\SODIUM CHLORIDE
     Route: 048
     Dates: start: 20170709, end: 20170709
  36. EUTHYROX [Concomitant]
     Active Substance: LEVOTHYROXINE SODIUM
     Route: 048
     Dates: start: 20170303, end: 20210615
  37. NOVALGIN (AUSTRIA) [Concomitant]
     Route: 048
     Dates: start: 20170329, end: 20180807
  38. LASIX [Concomitant]
     Active Substance: FUROSEMIDE
     Route: 058
     Dates: start: 20170810, end: 20170810
  39. KCL [Concomitant]
     Active Substance: POTASSIUM CHLORIDE
     Route: 048
     Dates: start: 20170429, end: 20190305
  40. ONDANSETRON HYDROCHLORIDE [Concomitant]
     Active Substance: ONDANSETRON HYDROCHLORIDE
     Route: 048
     Dates: start: 20170329, end: 20170809
  41. PARACODIN [Concomitant]
     Route: 048
     Dates: start: 20170708, end: 20170709
  42. TAZOBACTAM [Concomitant]
     Active Substance: TAZOBACTAM
     Route: 042
     Dates: start: 20170708, end: 20170710
  43. LOVENOX [Concomitant]
     Active Substance: ENOXAPARIN SODIUM
     Route: 058
     Dates: start: 20170224, end: 20171130
  44. FILGRASTIM [Concomitant]
     Active Substance: FILGRASTIM
     Route: 058
     Dates: start: 20170704, end: 20170708
  45. AUGMENTIN [Concomitant]
     Active Substance: AMOXICILLIN\CLAVULANATE POTASSIUM
     Route: 048
     Dates: start: 20170711, end: 20170713
  46. DEXAMETHASONE [Concomitant]
     Active Substance: DEXAMETHASONE
     Indication: Radiotherapy
     Route: 048
     Dates: start: 20171004, end: 20171006
  47. XICLAV (AUSTRIA) [Concomitant]
     Route: 048
     Dates: start: 20181218, end: 20181222
  48. MOTRIM (AUSTRIA) [Concomitant]
     Indication: Urinary tract infection
     Route: 048
     Dates: start: 20190619, end: 20190623
  49. TRAZODONE HYDROCHLORIDE [Concomitant]
     Active Substance: TRAZODONE HYDROCHLORIDE
     Indication: Pain in extremity
     Route: 048
     Dates: start: 20190731, end: 20190910
  50. KALIORAL (AUSTRIA) [Concomitant]
     Route: 048
     Dates: start: 20200427, end: 20200428
  51. EMEND [Concomitant]
     Active Substance: APREPITANT
  52. BETAISODONA [Concomitant]
     Active Substance: POVIDONE-IODINE
  53. NERIFORTE [Concomitant]
  54. LEUKICHTAN (AUSTRIA) [Concomitant]
  55. LEVOFLOXACIN [Concomitant]
     Active Substance: LEVOFLOXACIN
  56. ACETAMINOPHEN [Concomitant]
     Active Substance: ACETAMINOPHEN
  57. FENTANYL [Concomitant]
     Active Substance: FENTANYL\FENTANYL CITRATE
  58. ZOFRAN [Concomitant]
     Active Substance: ONDANSETRON HYDROCHLORIDE
  59. PASPERTIN [Concomitant]
  60. SILICON [Concomitant]
     Active Substance: SILICON
  61. AMOXICILLIN\CLAVULANATE POTASSIUM [Concomitant]
     Active Substance: AMOXICILLIN\CLAVULANATE POTASSIUM
  62. HYDROMORPHONE HYDROCHLORIDE [Concomitant]
     Active Substance: HYDROMORPHONE HYDROCHLORIDE
  63. CEFEPIME [Concomitant]
     Active Substance: CEFEPIME HYDROCHLORIDE
  64. ACETAMINOPHEN [Concomitant]
     Active Substance: ACETAMINOPHEN
  65. DEXAMETHASONE [Concomitant]
     Active Substance: DEXAMETHASONE
  66. LIDOCAINE [Concomitant]
     Active Substance: LIDOCAINE
  67. CARBOXYMETHYLCELLULOSE SODIUM [Concomitant]
     Active Substance: CARBOXYMETHYLCELLULOSE SODIUM
  68. FILGRASTIM [Concomitant]
     Active Substance: FILGRASTIM
  69. MORPHINE [Concomitant]
     Active Substance: MORPHINE
  70. ZIEXTENZO [Concomitant]
     Active Substance: PEGFILGRASTIM-BMEZ
  71. ONDANSETRON [Concomitant]
     Active Substance: ONDANSETRON
  72. POLYETHYLENE GLYCOL 3350\POTASSIUM CHLORIDE\SODIUM BICARBONATE\SODIUM [Concomitant]
     Active Substance: POLYETHYLENE GLYCOL 3350\POTASSIUM CHLORIDE\SODIUM BICARBONATE\SODIUM CHLORIDE
  73. AMPHO-MORONAL [Concomitant]
     Active Substance: AMPHOTERICIN B
  74. ALPRAZOLAM [Concomitant]
     Active Substance: ALPRAZOLAM
  75. TEMESTA [Concomitant]
  76. LACTULOSE [Concomitant]
     Active Substance: LACTULOSE
  77. VITAMIN C [Concomitant]
     Active Substance: ASCORBIC ACID
  78. HALSET [Concomitant]
  79. DROPERIDOL [Concomitant]
     Active Substance: DROPERIDOL
  80. SCOTTOPECT [Concomitant]
  81. PONVERIDOL [Concomitant]
  82. LORAZEPAM [Concomitant]
     Active Substance: LORAZEPAM
  83. BUTYLSCOPOLAMINE BROMIDE [Concomitant]
     Active Substance: BUTYLSCOPOLAMINE BROMIDE
  84. DRONABINOL [Concomitant]
     Active Substance: DRONABINOL
  85. HYALURONATE SODIUM [Concomitant]
     Active Substance: HYALURONATE SODIUM

REACTIONS (1)
  - Nail bed inflammation [Not Recovered/Not Resolved]

NARRATIVE: CASE EVENT DATE: 20191215
